FAERS Safety Report 4800034-9 (Version None)
Quarter: 2005Q4

REPORT INFORMATION
  Report Type: 
  Country: None (occurrence: None)
  Receive Date: 20051017
  Receipt Date: 20051005
  Transmission Date: 20060501
  Serious: Yes (Other)
  Sender: FDA-Public Use
  Company Number: US-JNJFOC-20051001419

PATIENT
  Sex: Female
  Weight: 63.5 kg

DRUGS (5)
  1. REMICADE [Suspect]
     Indication: RHEUMATOID ARTHRITIS
     Route: 042
  2. PREMPRO [Concomitant]
  3. PREMPRO [Concomitant]
  4. PROTONIX [Concomitant]
  5. PLAQUENIL [Concomitant]

REACTIONS (7)
  - DYSPNOEA [None]
  - MOBILITY DECREASED [None]
  - PAIN [None]
  - PARALYSIS [None]
  - THROAT TIGHTNESS [None]
  - TYPE IV HYPERSENSITIVITY REACTION [None]
  - URTICARIA [None]
